FAERS Safety Report 4682226-5 (Version None)
Quarter: 2005Q2

REPORT INFORMATION
  Report Type: 
  Country: None (occurrence: None)
  Receive Date: 20050606
  Receipt Date: 20050527
  Transmission Date: 20051028
  Serious: Yes (Other)
  Sender: FDA-Public Use
  Company Number: PHBS2005MX07725

PATIENT
  Age: 53 Year
  Sex: Female

DRUGS (7)
  1. MIACALCIN [Suspect]
     Indication: PRURITUS
     Dosage: 100 IU, QD
     Dates: start: 20050525
  2. QUETOSTERIL [Concomitant]
     Route: 048
     Dates: start: 20050524
  3. METOPROLOL [Concomitant]
     Indication: HYPERTENSION
     Route: 048
     Dates: start: 20050101
  4. FUROSEMIDE [Concomitant]
     Route: 048
  5. ZIOPRIL [Concomitant]
     Route: 048
  6. ANALAPRIL [Concomitant]
     Indication: HYPERTENSION
  7. METOCLOPRAMIDE [Concomitant]
     Indication: REFLUX OESOPHAGITIS
     Dosage: UNK, UNK
     Route: 048
     Dates: start: 20050101

REACTIONS (3)
  - DISCOMFORT [None]
  - HAEMATEMESIS [None]
  - HEADACHE [None]
